FAERS Safety Report 10150396 (Version 2)
Quarter: 2014Q2

REPORT INFORMATION
  Report Type: Spontaneous
  Country: CA (occurrence: CA)
  Receive Date: 20140502
  Receipt Date: 20140602
  Transmission Date: 20141212
  Serious: Yes (Other)
  Sender: FDA-Public Use
  Company Number: CA-TAKEDA-2014TUS003297

PATIENT
  Age: 53 Year
  Sex: Male
  Weight: 109 kg

DRUGS (20)
  1. DEXILANT [Suspect]
     Indication: DYSPEPSIA
     Dosage: 30 MG, QD
     Dates: start: 20130130, end: 20130806
  2. DEXILANT [Suspect]
     Dosage: 30 MG, QD
     Dates: start: 20130827
  3. CELEBREX [Suspect]
     Indication: PAIN
     Dosage: 100 MG, BID
     Dates: start: 20130725
  4. ADVAIR [Concomitant]
     Dosage: UNK
  5. ATIVAN [Concomitant]
     Dosage: UNK
  6. BACTROBAN                          /00753901/ [Concomitant]
     Dosage: UNK
  7. BENADRYL                           /00000402/ [Concomitant]
     Dosage: UNK
  8. CANESTEN [Concomitant]
     Dosage: UNK
  9. CELESTODERM V/2 [Concomitant]
     Dosage: UNK
  10. CHOLECALCIFEROL [Concomitant]
     Dosage: UNK
  11. COUMADIN                           /00014802/ [Concomitant]
     Dosage: UNK
  12. DEPAKENE                           /00228501/ [Concomitant]
     Dosage: UNK
  13. DICLOFENAC [Concomitant]
     Dosage: UNK
  14. FERROUS SULPHATE                   /00023503/ [Concomitant]
     Dosage: UNK
  15. GLAXAL BASE [Concomitant]
     Dosage: UNK
  16. LASIX                              /00032601/ [Concomitant]
     Dosage: UNK
  17. SEROQUEL [Concomitant]
     Dosage: UNK
  18. TYLENOL                            /00020001/ [Concomitant]
     Dosage: UNK
  19. VENTOLIN                           /00139501/ [Concomitant]
     Dosage: UNK
  20. ZINC OXIDE [Concomitant]
     Dosage: UNK

REACTIONS (1)
  - International normalised ratio increased [Recovered/Resolved]
